FAERS Safety Report 7880432-X (Version None)
Quarter: 2011Q4

REPORT INFORMATION
  Report Type: 
  Country: None (occurrence: None)
  Receive Date: 20111101
  Receipt Date: 20111025
  Transmission Date: 20120403
  Serious: Yes (Hospitalization, Other)
  Sender: FDA-Public Use
  Company Number: PHHY2011US65314

PATIENT
  Sex: Female
  Weight: 56.79 kg

DRUGS (1)
  1. EXJADE [Suspect]
     Indication: MYELODYSPLASTIC SYNDROME
     Dosage: 1500 MG, DAILY
     Route: 048
     Dates: start: 20091012

REACTIONS (4)
  - LIGAMENT SPRAIN [None]
  - PAIN [None]
  - PAIN IN EXTREMITY [None]
  - FALL [None]
